FAERS Safety Report 7559640-3 (Version None)
Quarter: 2011Q2

REPORT INFORMATION
  Report Type: 
  Country: None (occurrence: None)
  Receive Date: 20110621
  Receipt Date: 20110607
  Transmission Date: 20111010
  Serious: Yes (Death, Life-Threatening, Hospitalization)
  Sender: FDA-Public Use
  Company Number: US-ROCHE-726761

PATIENT
  Sex: Female

DRUGS (7)
  1. METOPROLOL TARTRATE [Concomitant]
  2. OXYCODONE HCL [Concomitant]
  3. BEVACIZUMAB [Suspect]
     Indication: BREAST CANCER
     Dosage: OVER 30-90 MINUTES ON DAYS 1 AND 15
     Route: 042
     Dates: start: 20090723
  4. IXABEPILONE [Suspect]
     Indication: BREAST CANCER
     Dosage: FREQUENCY : OVER 1 HOUR ON DAYS 1, 8, AND 15
     Route: 042
     Dates: start: 20090723
  5. ZOLEDRONIC ACID [Concomitant]
  6. AMITRIPTYLINE HCL [Concomitant]
  7. NAPROXEN SODIUM [Concomitant]

REACTIONS (2)
  - VENA CAVA THROMBOSIS [None]
  - HEPATIC FAILURE [None]
